FAERS Safety Report 5334307-0 (Version None)
Quarter: 2007Q2

REPORT INFORMATION
  Report Type: 
  Country: None (occurrence: None)
  Receive Date: 20070525
  Receipt Date: 20070516
  Transmission Date: 20071010
  Serious: Yes (Other)
  Sender: FDA-Public Use
  Company Number: PHBS2006FI00678

PATIENT
  Sex: Female

DRUGS (2)
  1. TRILEPTAL [Suspect]
     Indication: EPILEPSY
     Dosage: 450 TO 900 MG/DAY
     Route: 048
  2. TRILEPTAL [Suspect]
     Dosage: 900 MG/DAY
     Route: 048

REACTIONS (7)
  - DEPRESSION [None]
  - DERMATITIS [None]
  - DRUG EXPOSURE DURING PREGNANCY [None]
  - FEELING GUILTY [None]
  - PRURITUS [None]
  - RASH [None]
  - SKIN INJURY [None]
